FAERS Safety Report 22162041 (Version 1)
Quarter: 2023Q1

REPORT INFORMATION
  Report Type: Spontaneous
  Country: US (occurrence: US)
  Receive Date: 20230331
  Receipt Date: 20230331
  Transmission Date: 20230417
  Serious: No
  Sender: FDA-Public Use
  Company Number: US-SA-SAC20230330000330

PATIENT
  Sex: Female

DRUGS (1)
  1. DUPIXENT [Suspect]
     Active Substance: DUPILUMAB
     Dosage: 300MG, FREQUENCY: OTHER
     Route: 058

REACTIONS (5)
  - Injection site pain [Unknown]
  - Treatment noncompliance [Unknown]
  - Dry eye [Unknown]
  - Lack of injection site rotation [Unknown]
  - Product dose omission in error [Unknown]
